FAERS Safety Report 10247447 (Version 1)
Quarter: 2014Q2

REPORT INFORMATION
  Report Type: Spontaneous
  Country: JP (occurrence: JP)
  Receive Date: 20140619
  Receipt Date: 20140619
  Transmission Date: 20141212
  Serious: Yes (Other)
  Sender: FDA-Public Use
  Company Number: JP-BRISTOL-MYERS SQUIBB COMPANY-21002282

PATIENT
  Sex: Male

DRUGS (1)
  1. METGLUCO [Suspect]
     Indication: DIABETES MELLITUS
     Dosage: TOTAL DAILY DOSE 500MG
     Route: 048

REACTIONS (2)
  - Enterocolitis [Unknown]
  - Diarrhoea [Recovered/Resolved]
